FAERS Safety Report 6021981-9 (Version None)
Quarter: 2008Q4

REPORT INFORMATION
  Report Type: 
  Country: None (occurrence: None)
  Receive Date: 20081223
  Receipt Date: 20081209
  Transmission Date: 20090506
  Serious: Yes (Death, Hospitalization, Other)
  Sender: FDA-Public Use
  Company Number: 55026

PATIENT
  Age: 49 Year
  Sex: Male

DRUGS (1)
  1. AZATHIOPRINE SODIUM [Suspect]
     Indication: IMMUNOSUPPRESSION

REACTIONS (2)
  - HUMAN HERPESVIRUS 8 INFECTION [None]
  - KAPOSI'S SARCOMA [None]
